FAERS Safety Report 4959109-6 (Version None)
Quarter: 2006Q1

REPORT INFORMATION
  Report Type: 
  Country: None (occurrence: None)
  Receive Date: 20060324
  Receipt Date: 20060307
  Transmission Date: 20060701
  Serious: Yes (Other)
  Sender: FDA-Public Use
  Company Number: US200603001770

PATIENT
  Sex: Male

DRUGS (3)
  1. HUMALOG MIX 75/25 [Suspect]
  2. HUMULIN 70/30 [Suspect]
     Dates: start: 19900101
  3. HUMALOG MIX [Concomitant]

REACTIONS (25)
  - BALANCE DISORDER [None]
  - BRAIN NEOPLASM [None]
  - CEREBRAL THROMBOSIS [None]
  - COGNITIVE DISORDER [None]
  - CROHN'S DISEASE [None]
  - DISEASE RECURRENCE [None]
  - FALL [None]
  - HEAD INJURY [None]
  - HEADACHE [None]
  - HIP FRACTURE [None]
  - HYPERHIDROSIS [None]
  - INSOMNIA [None]
  - LIMB INJURY [None]
  - LOWER LIMB FRACTURE [None]
  - MULTIPLE FRACTURES [None]
  - NIGHTMARE [None]
  - PARAESTHESIA [None]
  - PHOBIA [None]
  - POLYDIPSIA [None]
  - ROAD TRAFFIC ACCIDENT [None]
  - SKIN DISCOLOURATION [None]
  - SKIN LACERATION [None]
  - SPINAL FRACTURE [None]
  - THIRST [None]
  - VISUAL ACUITY REDUCED [None]
